FAERS Safety Report 11860456 (Version 1)
Quarter: 2015Q4

REPORT INFORMATION
  Report Type: Report from Study
  Country: CA (occurrence: CA)
  Receive Date: 20151222
  Receipt Date: 20151222
  Transmission Date: 20160305
  Serious: Yes (Other)
  Sender: FDA-Public Use
  Company Number: CA-GILEAD-2015-0189251

PATIENT
  Age: 62 Year
  Sex: Male

DRUGS (2)
  1. TENOFOVIR DISOPROXIL FUMARATE. [Suspect]
     Active Substance: TENOFOVIR DISOPROXIL FUMARATE
     Indication: HEPATITIS B
     Dosage: UNK
     Route: 048
     Dates: start: 2011
  2. PANTOPRAZOLE [Concomitant]
     Active Substance: PANTOPRAZOLE SODIUM
     Dosage: UNK
     Dates: start: 2015

REACTIONS (6)
  - Arthralgia [Unknown]
  - Asthenia [Unknown]
  - Surgery [Unknown]
  - Hepatic cancer [Unknown]
  - Hyperhidrosis [Unknown]
  - Dysstasia [Unknown]

NARRATIVE: CASE EVENT DATE: 201501
